FAERS Safety Report 25491883 (Version 1)
Quarter: 2025Q2

REPORT INFORMATION
  Report Type: Spontaneous
  Country: MX (occurrence: MX)
  Receive Date: 20250630
  Receipt Date: 20250630
  Transmission Date: 20250716
  Serious: Yes (Hospitalization)
  Sender: COLLEGIUM PHARMACEUTICAL
  Company Number: MX-GRUNENTHAL-2025-108951

PATIENT
  Age: 90 Year
  Sex: Female

DRUGS (1)
  1. NUCYNTA ER [Suspect]
     Active Substance: TAPENTADOL HYDROCHLORIDE
     Indication: Product used for unknown indication
     Route: 048

REACTIONS (5)
  - Abdominal distension [Unknown]
  - Dysstasia [Unknown]
  - Hypersomnia [Unknown]
  - Decreased appetite [Unknown]
  - Fatigue [Unknown]
